FAERS Safety Report 9027826 (Version 3)
Quarter: 2013Q1

REPORT INFORMATION
  Report Type: Report from Study
  Country: US (occurrence: US)
  Receive Date: 20130124
  Receipt Date: 20130205
  Transmission Date: 20140127
  Serious: Yes (Hospitalization, Other)
  Sender: FDA-Public Use
  Company Number: US-JNJFOC-20130111262

PATIENT
  Age: 14 Year
  Sex: Male
  Weight: 41.3 kg

DRUGS (14)
  1. REMICADE [Suspect]
     Indication: INFLAMMATORY BOWEL DISEASE
     Route: 042
     Dates: start: 20111230, end: 20120521
  2. 6- MERCAPTOPURINE [Concomitant]
  3. 5-ASA [Concomitant]
     Route: 048
  4. PROBIOTICS [Concomitant]
  5. ALBUTEROL [Concomitant]
  6. CREON [Concomitant]
  7. VITAMIN [Concomitant]
  8. OMEPRAZOLE [Concomitant]
  9. ALL OTHER THERAPEUTIC DRUGS [Concomitant]
  10. TOBRAMYCIN [Concomitant]
  11. IRON [Concomitant]
  12. CYPROHEPTADINE [Concomitant]
  13. ALL OTHER THERAPEUTIC DRUGS [Concomitant]
  14. AUGMENTIN [Concomitant]
     Indication: CYSTIC FIBROSIS

REACTIONS (2)
  - Infective pulmonary exacerbation of cystic fibrosis [Recovered/Resolved]
  - Gastroenteritis viral [Recovered/Resolved]
